FAERS Safety Report 5515096-3 (Version None)
Quarter: 2007Q4

REPORT INFORMATION
  Report Type: 
  Country: None (occurrence: None)
  Receive Date: 20071113
  Receipt Date: 20070102
  Transmission Date: 20080405
  Serious: No
  Sender: FDA-Public Use
  Company Number: A0633231A

PATIENT
  Age: 76 Year
  Sex: Male

DRUGS (3)
  1. COREG [Suspect]
     Indication: HYPERTENSION
     Dosage: 3.125MG TWICE PER DAY
     Route: 048
     Dates: start: 20060801, end: 20060814
  2. COUMADIN [Concomitant]
  3. POTASSIUM CHLORIDE [Concomitant]

REACTIONS (3)
  - HEART RATE DECREASED [None]
  - NIGHT SWEATS [None]
  - PHARMACEUTICAL PRODUCT COMPLAINT [None]
